FAERS Safety Report 5913451-0 (Version None)
Quarter: 2008Q4

REPORT INFORMATION
  Report Type: 
  Country: None (occurrence: None)
  Receive Date: 20081009
  Receipt Date: 20080919
  Transmission Date: 20090506
  Serious: No
  Sender: FDA-Public Use
  Company Number: US-BAYER-200813865BCC

PATIENT
  Sex: Female
  Weight: 69 kg

DRUGS (1)
  1. ALEVE [Suspect]
     Indication: ARTHRALGIA
     Dosage: TOTAL DAILY DOSE: 440 MG  UNIT DOSE: 220 MG
     Route: 048
     Dates: start: 20080801, end: 20080919

REACTIONS (1)
  - MYALGIA [None]
